FAERS Safety Report 8543037-3 (Version None)
Quarter: 2012Q3

REPORT INFORMATION
  Report Type: 
  Country: None (occurrence: None)
  Receive Date: 20120727
  Receipt Date: 20120724
  Transmission Date: 20120928
  Serious: Yes (Life-Threatening)
  Sender: FDA-Public Use
  Company Number: US-BAYER-2012-074657

PATIENT
  Age: 71 Year
  Sex: Male
  Weight: 66.3 kg

DRUGS (14)
  1. FISH OIL [Concomitant]
     Dosage: 1000 MG, QD (500 MG CAPSULE, TAKE 2)
     Route: 048
  2. LIDOCAINE [Concomitant]
     Indication: PAIN
     Dosage: 10 ML, Q4HOURS PRN
  3. OMEPRAZOLE [Concomitant]
     Dosage: 20 MG, BID
     Route: 048
  4. LISINOPRIL [Concomitant]
     Dosage: 10 MG, QD
     Route: 048
  5. ASPIRIN [Concomitant]
     Dosage: 81 MG, QD
     Route: 048
  6. BORTEZOMIB [Suspect]
     Indication: METASTATIC MALIGNANT MELANOMA
     Dosage: 1.3 MG/M2, DAY 1, WEEKS 1-3
     Route: 042
  7. LIPITOR [Concomitant]
     Dosage: 20 MG, HS
     Route: 048
  8. TAMSULOSIN HCL [Concomitant]
     Dosage: 0.4 MG, QD
     Route: 048
  9. MAGNESIUM HYDROXIDE TAB [Concomitant]
     Indication: PAIN
     Dosage: 10 ML, Q 4 HOURS PRN
  10. SENNA-MINT WAF [Concomitant]
     Indication: CONSTIPATION
     Dosage: 1 TAB BID, PRN
     Route: 048
  11. GLUCOSAMINE [Concomitant]
     Dosage: 750 MG, BID
     Route: 048
  12. DIPHENHYDRAMINE HCL [Concomitant]
     Indication: PAIN
     Dosage: 10 ML, Q 4 HOURS PRN
  13. SORAFENIB (RAF KINASE INHIBITOR) [Suspect]
     Indication: METASTATIC MALIGNANT MELANOMA
     Dosage: 400 MG, BID
     Route: 048
     Dates: start: 20120703
  14. ZOFRAN [Concomitant]
     Indication: NAUSEA
     Dosage: 8 MG, Q 8 HOURS PRN
     Route: 048

REACTIONS (1)
  - LYMPHOPENIA [None]
